FAERS Safety Report 4284251-5 (Version None)
Quarter: 2004Q1

REPORT INFORMATION
  Report Type: 
  Country: None (occurrence: None)
  Receive Date: 20040202
  Receipt Date: 20040202
  Transmission Date: 20041129
  Serious: Yes (Other)
  Sender: FDA-Public Use
  Company Number: None

PATIENT
  Age: 60 Year
  Sex: Female

DRUGS (1)
  1. OMNIPAQUE 240 [Suspect]
     Indication: COMPUTERISED TOMOGRAM
     Dosage: 150 ML ONCE INTRAVENOUS
     Route: 042

REACTIONS (1)
  - URTICARIA [None]
